FAERS Safety Report 10516749 (Version 1)
Quarter: 2014Q4

REPORT INFORMATION
  Report Type: Spontaneous
  Country: US (occurrence: US)
  Receive Date: 20141014
  Receipt Date: 20141014
  Transmission Date: 20150528
  Serious: Yes (Other)
  Sender: FDA-Public Use
  Company Number: US-PFIZER INC-2014278346

PATIENT
  Age: 37 Year
  Sex: Female

DRUGS (1)
  1. INLYTA [Suspect]
     Active Substance: AXITINIB
     Indication: METASTATIC RENAL CELL CARCINOMA
     Dosage: 5 MG, 2X/DAY
     Route: 048
     Dates: start: 20140818

REACTIONS (5)
  - Gait disturbance [Unknown]
  - Diastolic hypertension [Unknown]
  - Vision blurred [Unknown]
  - Diplopia [Unknown]
  - Blister [Unknown]
